FAERS Safety Report 11172433 (Version 2)
Quarter: 2015Q3

REPORT INFORMATION
  Report Type: Report from Study
  Country: CA (occurrence: CA)
  Receive Date: 20150608
  Receipt Date: 20150827
  Transmission Date: 20151125
  Serious: Yes (Death, Hospitalization, Other)
  Sender: FDA-Public Use
  Company Number: CA-TEVA-565696USA

PATIENT
  Age: 74 Year
  Sex: Male

DRUGS (3)
  1. TREANDA [Suspect]
     Active Substance: BENDAMUSTINE HYDROCHLORIDE
     Indication: NON-HODGKIN^S LYMPHOMA UNSPECIFIED HISTOLOGY INDOLENT
     Dosage: EVERY 28 DAYS
     Route: 042
     Dates: start: 20141128, end: 20150415
  2. RITUXAN [Suspect]
     Active Substance: RITUXIMAB
     Indication: NON-HODGKIN^S LYMPHOMA UNSPECIFIED HISTOLOGY INDOLENT
     Dosage: EVERY 28 DAYS
     Route: 042
     Dates: start: 20141128, end: 20150415
  3. IDELALISIB [Suspect]
     Active Substance: IDELALISIB
     Indication: NON-HODGKIN^S LYMPHOMA UNSPECIFIED HISTOLOGY INDOLENT
     Dosage: 200 MILLIGRAM DAILY;
     Route: 048
     Dates: start: 201501, end: 20150511

REACTIONS (4)
  - Acute myocardial infarction [Fatal]
  - Urosepsis [Fatal]
  - Renal failure [Fatal]
  - Pneumocystis jirovecii pneumonia [Fatal]

NARRATIVE: CASE EVENT DATE: 20150511
